FAERS Safety Report 10081290 (Version 1)
Quarter: 2014Q2

REPORT INFORMATION
  Report Type: Spontaneous
  Country: US (occurrence: US)
  Receive Date: 20140416
  Receipt Date: 20140416
  Transmission Date: 20141212
  Serious: Yes (Hospitalization)
  Sender: FDA-Public Use
  Company Number: US-JNJFOC-20140406420

PATIENT
  Age: 52 Year
  Sex: Female
  Weight: 75 kg

DRUGS (4)
  1. INVOKANA [Suspect]
     Indication: TYPE 2 DIABETES MELLITUS
     Route: 048
     Dates: start: 20131008, end: 20131119
  2. METFORMIN [Concomitant]
     Dates: start: 2005
  3. LISINOPRIL [Concomitant]
     Dates: start: 2005
  4. LEVAQUIN [Concomitant]

REACTIONS (5)
  - Renal failure acute [Recovered/Resolved]
  - Lactic acidosis [Recovered/Resolved]
  - Dehydration [Recovered/Resolved]
  - Dyspnoea [Recovered/Resolved]
  - Sinusitis [Recovered/Resolved]
